FAERS Safety Report 14824590 (Version 2)
Quarter: 2020Q2

REPORT INFORMATION
  Report Type: Spontaneous
  Country: US (occurrence: US)
  Receive Date: 20180429
  Receipt Date: 20200623
  Transmission Date: 20200713
  Serious: No
  Sender: FDA-Public Use
  Company Number: US-BIOGEN-2018BI00561479

PATIENT
  Age: 55 Year
  Sex: Female

DRUGS (1)
  1. TECFIDERA [Suspect]
     Active Substance: DIMETHYL FUMARATE
     Indication: MULTIPLE SCLEROSIS
     Route: 050
     Dates: start: 20130815, end: 20150601

REACTIONS (4)
  - Lymphocyte count increased [Recovered/Resolved]
  - CD4 lymphocytes decreased [Unknown]
  - Lymphocyte count decreased [Unknown]
  - Monocyte count increased [Recovered/Resolved]

NARRATIVE: CASE EVENT DATE: 20130815
